FAERS Safety Report 9658100 (Version 1)
Quarter: 2013Q4

REPORT INFORMATION
  Report Type: Spontaneous
  Country: US (occurrence: US)
  Receive Date: 20131030
  Receipt Date: 20131030
  Transmission Date: 20140711
  Serious: No
  Sender: FDA-Public Use
  Company Number: US-009507513-1310USA011853

PATIENT
  Sex: 0

DRUGS (1)
  1. AZASITE [Suspect]

REACTIONS (2)
  - Drug dose omission [Unknown]
  - Product quality issue [Unknown]
